FAERS Safety Report 25749963 (Version 4)
Quarter: 2025Q4

REPORT INFORMATION
  Report Type: Spontaneous
  Country: US (occurrence: US)
  Receive Date: 20250902
  Receipt Date: 20251023
  Transmission Date: 20260117
  Serious: Yes (Other)
  Sender: AUROBINDO
  Company Number: US-AUROBINDO-AUR-APL-2025-043575

PATIENT
  Age: 48 Year
  Sex: Male

DRUGS (16)
  1. AMITRIPTYLINE HYDROCHLORIDE [Suspect]
     Active Substance: AMITRIPTYLINE HYDROCHLORIDE
     Indication: Major depression
     Dosage: UNK
     Route: 065
  2. ARIPIPRAZOLE [Suspect]
     Active Substance: ARIPIPRAZOLE
     Indication: Major depression
     Dosage: 5 MILLIGRAM, DAILY
     Route: 065
  3. BUPROPION HYDROCHLORIDE [Suspect]
     Active Substance: BUPROPION HYDROCHLORIDE
     Indication: Major depression
     Dosage: UNK
     Route: 065
  4. MIRTAZAPINE [Suspect]
     Active Substance: MIRTAZAPINE
     Indication: Major depression
     Dosage: 60 MILLIGRAM
     Route: 065
  5. OLANZAPINE [Suspect]
     Active Substance: OLANZAPINE
     Indication: Major depression
     Dosage: UNK
     Route: 065
  6. PIOGLITAZONE [Suspect]
     Active Substance: PIOGLITAZONE
     Indication: Major depression
     Dosage: UNK
     Route: 065
  7. PREGABALIN [Suspect]
     Active Substance: PREGABALIN
     Indication: Major depression
     Dosage: 300 MILLIGRAM, DAILY
     Route: 065
  8. QUETIAPINE [Suspect]
     Active Substance: QUETIAPINE
     Indication: Major depression
     Dosage: UNK
     Route: 065
  9. ESZOPICLONE [Suspect]
     Active Substance: ESZOPICLONE
     Indication: Major depression
     Dosage: 6 MILLIGRAM, DAILY
     Route: 065
  10. TRANYLCYPROMINE [Suspect]
     Active Substance: TRANYLCYPROMINE
     Indication: Major depression
     Dosage: 160 MILLIGRAM, DAILY
     Route: 065
  11. TRANYLCYPROMINE [Suspect]
     Active Substance: TRANYLCYPROMINE
     Dosage: 60 MILLIGRAM (ESCALATED THE DOSAGE TO 2400 MG/D)
     Route: 065
  12. LISDEXAMFETAMINE [Suspect]
     Active Substance: LISDEXAMFETAMINE
     Indication: Major depression
     Dosage: UNK
     Route: 065
  13. SELEGILINE [Suspect]
     Active Substance: SELEGILINE
     Indication: Major depression
     Dosage: UNK
     Route: 065
  14. AMISULPRIDE [Suspect]
     Active Substance: AMISULPRIDE
     Indication: Major depression
     Dosage: UNK
     Route: 065
  15. BREXPIPRAZOLE [Suspect]
     Active Substance: BREXPIPRAZOLE
     Indication: Major depression
     Dosage: UNK
     Route: 065
  16. METAMIZOLE [Suspect]
     Active Substance: METAMIZOLE
     Indication: Major depression
     Dosage: 10 TABLETS OF 500 MG DAILY FOR 1 MONTH
     Route: 065

REACTIONS (5)
  - Thrombocytopenia [Unknown]
  - Condition aggravated [Unknown]
  - Drug ineffective [Unknown]
  - Intentional product misuse [Unknown]
  - Therapeutic product effect incomplete [Unknown]
